FAERS Safety Report 10341118 (Version 2)
Quarter: 2014Q3

REPORT INFORMATION
  Report Type: Spontaneous
  Country: US (occurrence: US)
  Receive Date: 20140724
  Receipt Date: 20140724
  Transmission Date: 20150326
  Serious: No
  Sender: FDA-Public Use
  Company Number: US-MYLANLABS-2014S1011056

PATIENT
  Age: 65 Year
  Sex: Female
  Weight: 53.07 kg

DRUGS (13)
  1. B COMPLEX (B50) [Concomitant]
  2. MAGNESIUM [Concomitant]
     Active Substance: MAGNESIUM
  3. FATTY ACID (UNSPECIFIED) [Concomitant]
  4. INSULIN [Concomitant]
     Active Substance: INSULIN NOS
  5. SYMLIN [Concomitant]
     Active Substance: PRAMLINTIDE ACETATE
  6. HORMONE THERAPY [Concomitant]
     Active Substance: UNSPECIFIED INGREDIENT
  7. VITAMIN B12 [Concomitant]
     Active Substance: CYANOCOBALAMIN
  8. OMEGA 3 /00931501/ [Concomitant]
     Dosage: 6 AND 9
  9. PROBIOTICS /07325001/ [Concomitant]
  10. LEVOTHYROXINE SODIUM TABLETS, USP [Suspect]
     Active Substance: LEVOTHYROXINE SODIUM
     Indication: HYPOTHYROIDISM
     Route: 048
     Dates: start: 201404
  11. VITAMIN C [Concomitant]
     Active Substance: ASCORBIC ACID
  12. VITAMIN D3 [Concomitant]
     Active Substance: CHOLECALCIFEROL
  13. CALCIUM [Concomitant]
     Active Substance: CALCIUM

REACTIONS (2)
  - Blood glucose increased [Not Recovered/Not Resolved]
  - Reaction to drug excipients [Not Recovered/Not Resolved]

NARRATIVE: CASE EVENT DATE: 20140510
